FAERS Safety Report 8133652-3 (Version None)
Quarter: 2012Q1

REPORT INFORMATION
  Report Type: 
  Country: None (occurrence: None)
  Receive Date: 20120213
  Receipt Date: 20110520
  Transmission Date: 20120608
  Serious: Yes (Other)
  Sender: FDA-Public Use
  Company Number: US-ROCHE-1030128

PATIENT

DRUGS (2)
  1. AVASTIN [Suspect]
     Indication: RENAL CELL CARCINOMA
  2. TEMSIROLIMUS [Suspect]
     Indication: RENAL CELL CARCINOMA
     Route: 042

REACTIONS (6)
  - ANAEMIA [None]
  - HYPERTRIGLYCERIDAEMIA [None]
  - ABDOMINAL PAIN [None]
  - FATIGUE [None]
  - PROTEINURIA [None]
  - STOMATITIS [None]
